FAERS Safety Report 11771760 (Version 4)
Quarter: 2016Q1

REPORT INFORMATION
  Report Type: Spontaneous
  Country: US (occurrence: US)
  Receive Date: 20151124
  Receipt Date: 20160115
  Transmission Date: 20160525
  Serious: Yes (Disabling, Other)
  Sender: FDA-Public Use
  Company Number: US-ROCHE-ITM201506IM017394

PATIENT
  Age: 67 Year
  Sex: Female

DRUGS (7)
  1. ESBRIET [Suspect]
     Active Substance: PIRFENIDONE
     Dosage: 2 CAPSULES BY MOUTH THREE TIMES A DAY WITH FOOD
     Route: 048
  2. ESBRIET [Suspect]
     Active Substance: PIRFENIDONE
     Dosage: 2 TABS
     Route: 048
     Dates: start: 20150423, end: 20150921
  3. ESBRIET [Suspect]
     Active Substance: PIRFENIDONE
     Dosage: 1 TAB
     Route: 048
     Dates: start: 20151014
  4. ESBRIET [Suspect]
     Active Substance: PIRFENIDONE
     Dosage: 6 CAPSULES 3 TIMES A DAY
     Route: 048
     Dates: start: 20151014
  5. ESBRIET [Suspect]
     Active Substance: PIRFENIDONE
     Dosage: 1 PILL
     Route: 048
  6. ESBRIET [Suspect]
     Active Substance: PIRFENIDONE
     Route: 065
     Dates: start: 20150417, end: 20150921
  7. ESBRIET [Suspect]
     Active Substance: PIRFENIDONE
     Indication: IDIOPATHIC PULMONARY FIBROSIS
     Dosage: TAKE 3 CAPSULES BY MOUTH THREE TIMES A DAY WITH?FOOD.
     Route: 048
     Dates: start: 20150508

REACTIONS (15)
  - Headache [Unknown]
  - Dyspepsia [Unknown]
  - Gastrooesophageal reflux disease [Unknown]
  - Decreased appetite [Recovered/Resolved]
  - Cough [Unknown]
  - Hypersensitivity [Unknown]
  - Vomiting [Unknown]
  - Dyspepsia [Recovering/Resolving]
  - Malaise [Unknown]
  - Increased upper airway secretion [Unknown]
  - Inner ear disorder [Unknown]
  - Nausea [Recovered/Resolved]
  - Sinusitis [Unknown]
  - Weight decreased [Recovered/Resolved]
  - Gastrointestinal disorder [Unknown]

NARRATIVE: CASE EVENT DATE: 201509
